FAERS Safety Report 8959650 (Version 1)
Quarter: 2012Q4

REPORT INFORMATION
  Report Type: 
  Country: JP (occurrence: JP)
  Receive Date: 20121212
  Receipt Date: 20121212
  Transmission Date: 20130627
  Serious: Yes (Other)
  Sender: FDA-Public Use
  Company Number: JP-PFIZER INC-2012310518

PATIENT
  Age: 76 Year

DRUGS (8)
  1. ALDACTONE A [Suspect]
     Route: 048
  2. LANDEL [Concomitant]
  3. NU LOTAN [Concomitant]
  4. LUPRAC [Concomitant]
  5. GLUCOBAY [Concomitant]
  6. NOVOLIN 30R [Concomitant]
  7. ACTOS [Concomitant]
  8. NITOROL [Concomitant]

REACTIONS (1)
  - Mycoplasma infection [Unknown]
